FAERS Safety Report 5204391-3 (Version None)
Quarter: 2007Q1

REPORT INFORMATION
  Report Type: 
  Country: None (occurrence: None)
  Receive Date: 20070110
  Receipt Date: 20060315
  Transmission Date: 20070707
  Serious: No
  Sender: FDA-Public Use
  Company Number: US-BRISTOL-MYERS SQUIBB COMPANY-13314901

PATIENT
  Age: 15 Year
  Sex: Female
  Weight: 45 kg

DRUGS (1)
  1. ABILIFY [Suspect]
     Indication: BIPOLAR DISORDER
     Dosage: DURATION OF THERAPY:  2 TO 3 MONTHS

REACTIONS (1)
  - AMENORRHOEA [None]
